FAERS Safety Report 9103971 (Version 1)
Quarter: 2013Q1

REPORT INFORMATION
  Report Type: Report from Study
  Country: CA (occurrence: CA)
  Receive Date: 20130219
  Receipt Date: 20130219
  Transmission Date: 20140127
  Serious: Yes (Other)
  Sender: FDA-Public Use
  Company Number: CA-JNJFOC-20130206771

PATIENT
  Sex: Female
  Weight: 71 kg

DRUGS (2)
  1. REMICADE [Suspect]
     Indication: CROHN^S DISEASE
     Dosage: ^8/52^
     Route: 042
     Dates: start: 201112
  2. NEXIUM [Concomitant]
     Route: 065

REACTIONS (2)
  - Amenorrhoea [Not Recovered/Not Resolved]
  - Migraine [Not Recovered/Not Resolved]
